FAERS Safety Report 4976441-0 (Version None)
Quarter: 2006Q2

REPORT INFORMATION
  Report Type: 
  Country: None (occurrence: None)
  Receive Date: 20060412
  Receipt Date: 20060327
  Transmission Date: 20061013
  Serious: Yes (Hospitalization)
  Sender: FDA-Public Use
  Company Number: 2005-00787FE

PATIENT
  Age: 36 Year
  Sex: Male

DRUGS (4)
  1. GROWTH HORMONE (SOMATROPIN) [Suspect]
     Indication: MUSCLE MASS
     Dosage: SEE IMAGE
  2. ANABOLIC STEROIDS [Concomitant]
  3. TESTOSTERONE PROPIONATE [Concomitant]
  4. STANOZOLOL [Concomitant]

REACTIONS (10)
  - DEHYDRATION [None]
  - DRUG ABUSER [None]
  - DYSPHONIA [None]
  - DYSPNOEA [None]
  - LARYNGEAL OEDEMA [None]
  - LARYNGOCELE [None]
  - MIDDLE INSOMNIA [None]
  - SLEEP APNOEA SYNDROME [None]
  - STRIDOR [None]
  - VOCAL CORD DISORDER [None]
